FAERS Safety Report 18277774 (Version 2)
Quarter: 2020Q4

REPORT INFORMATION
  Report Type: Spontaneous
  Country: JP (occurrence: JP)
  Receive Date: 20200917
  Receipt Date: 20201015
  Transmission Date: 20210113
  Serious: Yes (Hospitalization, Other)
  Sender: FDA-Public Use
  Company Number: JP-ASTRAZENECA-2020SF17279

PATIENT
  Age: 68 Year
  Sex: Female
  Weight: 41 kg

DRUGS (5)
  1. IMFINZI [Suspect]
     Active Substance: DURVALUMAB
     Indication: NON-SMALL CELL LUNG CANCER
     Route: 041
     Dates: start: 20191121, end: 20200702
  2. JANUVIA [Concomitant]
     Active Substance: SITAGLIPTIN PHOSPHATE
     Dosage: DOSE UNKNOWN
     Route: 065
  3. FORXIGA [Concomitant]
     Active Substance: DAPAGLIFLOZIN
     Indication: TYPE 2 DIABETES MELLITUS
     Dosage: DOSE UNKNOWN
     Route: 048
  4. URSODEOXYCHOLIC ACID [Concomitant]
     Active Substance: URSODIOL
     Dosage: DOSE UNKNOWN
     Route: 065
  5. NEO-MINOPHAGEN C [Concomitant]
     Active Substance: AMMONIUM GLYCYRRHIZATE
     Dosage: DOSE UNKNOWN
     Route: 065

REACTIONS (2)
  - Interstitial lung disease [Unknown]
  - Liver disorder [Recovered/Resolved]

NARRATIVE: CASE EVENT DATE: 20200730
